FAERS Safety Report 25886737 (Version 1)
Quarter: 2025Q4

REPORT INFORMATION
  Report Type: Spontaneous
  Country: US (occurrence: None)
  Receive Date: 20251005
  Receipt Date: 20251005
  Transmission Date: 20260118
  Serious: Yes (Other)
  Sender: FDA-CTU
  Company Number: None

PATIENT
  Age: 56 Year
  Sex: Female
  Weight: 87.75 kg

DRUGS (2)
  1. TIRZEPATIDE [Suspect]
     Active Substance: TIRZEPATIDE
     Indication: Weight decreased
     Dates: start: 20250925, end: 20250925
  2. tirz [Concomitant]

REACTIONS (4)
  - Illness [None]
  - Poor quality product administered [None]
  - Manufacturing issue [None]
  - Victim of abuse [None]

NARRATIVE: CASE EVENT DATE: 20250928
